FAERS Safety Report 24267649 (Version 1)
Quarter: 2024Q3

REPORT INFORMATION
  Report Type: Spontaneous
  Country: GB (occurrence: GB)
  Receive Date: 20240830
  Receipt Date: 20240830
  Transmission Date: 20241016
  Serious: Yes (Other)
  Sender: BOEHRINGER INGELHEIM
  Company Number: None

PATIENT
  Age: 66 Year
  Sex: Male
  Weight: 90 kg

DRUGS (6)
  1. EMPAGLIFLOZIN [Suspect]
     Active Substance: EMPAGLIFLOZIN
     Indication: Hip arthroplasty
     Dates: start: 20240415
  2. Amlodopine 10mg [Concomitant]
     Indication: Adverse drug reaction
     Dates: start: 2020
  3. CANDESARTAN [Concomitant]
     Active Substance: CANDESARTAN
     Indication: Blood pressure measurement
     Dates: start: 2005
  4. METFORMIN [Concomitant]
     Active Substance: METFORMIN HYDROCHLORIDE
     Indication: Adverse drug reaction
     Dates: start: 2004
  5. AMITRIPTYLINE 20mg [Concomitant]
     Indication: Neuralgia
     Dates: start: 2017
  6. ASPIRIN 75 [Concomitant]
     Indication: Product used for unknown indication
     Dates: start: 2004

REACTIONS (1)
  - Perineal abscess [Not Recovered/Not Resolved]

NARRATIVE: CASE EVENT DATE: 20240825
